FAERS Safety Report 13287853 (Version 6)
Quarter: 2019Q2

REPORT INFORMATION
  Report Type: Spontaneous
  Country: US (occurrence: US)
  Receive Date: 20170302
  Receipt Date: 20190625
  Transmission Date: 20190711
  Serious: Yes (Other)
  Sender: FDA-Public Use
  Company Number: US-PFIZER INC-2016570442

PATIENT
  Age: 17 Year
  Sex: Male
  Weight: 59 kg

DRUGS (4)
  1. BENEFIX [Suspect]
     Active Substance: COAGULATION FACTOR IX RECOMBINANT HUMAN\ISOPROPYL ALCOHOL
     Indication: HAEMORRHAGE
     Dosage: UNK (INFUSE 3000 UNITS PLUS MINUS 10% TWICE WEEKLY PROPHYLAXIS IV)
     Route: 042
  2. BENEFIX [Suspect]
     Active Substance: COAGULATION FACTOR IX RECOMBINANT HUMAN\ISOPROPYL ALCOHOL
     Indication: FACTOR IX DEFICIENCY
     Dosage: 4000 IU, AS NEEDED
     Route: 040
     Dates: start: 201612
  3. BENEFIX [Suspect]
     Active Substance: COAGULATION FACTOR IX RECOMBINANT HUMAN\ISOPROPYL ALCOHOL
     Indication: PROPHYLAXIS
     Dosage: 2000 IU, AS NEEDED TWICE A WEEK
     Route: 042
     Dates: start: 201612
  4. BENEFIX [Suspect]
     Active Substance: COAGULATION FACTOR IX RECOMBINANT HUMAN\ISOPROPYL ALCOHOL
     Dosage: UNK UNK, AS NEEDED (INFUSE 4000 UNITS PLUS MINUS 10% PRN BLEEDING)

REACTIONS (4)
  - Joint swelling [Not Recovered/Not Resolved]
  - Drug ineffective for unapproved indication [Unknown]
  - Haemorrhage [Unknown]
  - Product dose omission [Not Recovered/Not Resolved]

NARRATIVE: CASE EVENT DATE: 20170220
